FAERS Safety Report 25875155 (Version 3)
Quarter: 2025Q4

REPORT INFORMATION
  Report Type: Spontaneous
  Country: GB (occurrence: GB)
  Receive Date: 20251003
  Receipt Date: 20251103
  Transmission Date: 20260118
  Serious: Yes (Hospitalization)
  Sender: AMGEN
  Company Number: GB-AMGEN-GBRSP2025192899

PATIENT
  Sex: Female

DRUGS (2)
  1. ARANESP [Suspect]
     Active Substance: DARBEPOETIN ALFA
     Indication: Product used for unknown indication
     Dosage: 80 MICROGRAM (80 MCG/0.4ML) (THERAPY AREA: RHEUMATOLOGY)
     Route: 058
  2. FILGOTINIB [Suspect]
     Active Substance: FILGOTINIB
     Indication: Rheumatoid arthritis
     Dosage: 200 MILLIGRAM, QD
     Route: 048

REACTIONS (2)
  - Unevaluable event [Unknown]
  - Disease complication [Unknown]
